FAERS Safety Report 10386411 (Version 2)
Quarter: 2014Q3

REPORT INFORMATION
  Report Type: Spontaneous
  Country: TR (occurrence: TR)
  Receive Date: 20140815
  Receipt Date: 20140815
  Transmission Date: 20150326
  Serious: Yes (Hospitalization, Other)
  Sender: FDA-Public Use
  Company Number: TR-AMGEN-TURSP2014052997

PATIENT
  Age: 33 Year
  Sex: Male
  Weight: 84 kg

DRUGS (1)
  1. ENBREL [Suspect]
     Active Substance: ETANERCEPT
     Indication: ANKYLOSING SPONDYLITIS
     Dosage: 50 MG, WEEKLY
     Route: 058
     Dates: start: 20121201, end: 20140522

REACTIONS (4)
  - Complement factor C4 increased [Unknown]
  - Complement factor C3 increased [Unknown]
  - Glomerular filtration rate decreased [Unknown]
  - Pulmonary sarcoidosis [Recovering/Resolving]

NARRATIVE: CASE EVENT DATE: 20140522
